FAERS Safety Report 6654390-X (Version None)
Quarter: 2010Q1

REPORT INFORMATION
  Report Type: 
  Country: None (occurrence: None)
  Receive Date: 20100326
  Receipt Date: 20100316
  Transmission Date: 20100710
  Serious: Yes (Other)
  Sender: FDA-Public Use
  Company Number: JP-PFIZER INC-2010030286

PATIENT
  Age: 73 Year
  Sex: Male

DRUGS (6)
  1. CHAMPIX [Suspect]
     Indication: NICOTINE DEPENDENCE
     Dosage: 2 MG, 2X/DAY
     Route: 048
     Dates: start: 20100218, end: 20100223
  2. CHAMPIX [Suspect]
     Dosage: 0.5 MG, 2X/DAY
     Route: 048
     Dates: start: 20100218, end: 20100201
  3. CHAMPIX [Suspect]
     Dosage: 1 MG, 2X/DAY
     Route: 048
     Dates: start: 20100201
  4. CLARITIN [Concomitant]
     Dosage: UNK
     Route: 048
     Dates: start: 20091031
  5. SPIRIVA [Concomitant]
     Dosage: UNK
     Route: 045
     Dates: start: 20091226
  6. ADVAIR DISKUS 100/50 [Concomitant]
     Dosage: UNK
     Route: 045
     Dates: start: 20100130

REACTIONS (3)
  - AFFECTIVE DISORDER [None]
  - DECREASED APPETITE [None]
  - NAUSEA [None]
